FAERS Safety Report 4500633-8 (Version None)
Quarter: 2004Q4

REPORT INFORMATION
  Report Type: 
  Country: None (occurrence: None)
  Receive Date: 20041109
  Receipt Date: 20041027
  Transmission Date: 20050328
  Serious: Yes (Other)
  Sender: FDA-Public Use
  Company Number: 209991

PATIENT
  Age: 54 Year
  Sex: Female
  Weight: 75.9 kg

DRUGS (5)
  1. NUTROPIN AQ [Suspect]
     Indication: GROWTH HORMONE DEFICIENCY
     Dosage: 0.2 MG, QD, SUBCUTANEOUS
     Route: 058
     Dates: start: 20020605
  2. SYNTHROID [Concomitant]
  3. DDAVP (DESMOPRESSIN ACETATE) [Concomitant]
  4. HYDROCORTISONE [Concomitant]
  5. COZAAR [Concomitant]

REACTIONS (2)
  - NEOPLASM RECURRENCE [None]
  - PITUITARY TUMOUR BENIGN [None]
